FAERS Safety Report 8506737-7 (Version None)
Quarter: 2012Q3

REPORT INFORMATION
  Report Type: 
  Country: None (occurrence: None)
  Receive Date: 20120712
  Receipt Date: 20120709
  Transmission Date: 20120928
  Serious: Yes (Hospitalization, Disabling, Other)
  Sender: FDA-Public Use
  Company Number: US-009507513-1110USA01561

PATIENT

DRUGS (5)
  1. FOSAMAX [Suspect]
     Indication: OSTEOPOROSIS
     Route: 048
     Dates: start: 20000101
  2. ZOCOR [Concomitant]
     Dosage: 20 MG, HS
     Route: 048
  3. PRINIVIL [Concomitant]
     Dosage: 20 MG, QD
  4. NORVASC [Concomitant]
     Dosage: 10 MG, QD
  5. METOPROLOL TARTRATE [Concomitant]
     Dosage: 25 MG, QD

REACTIONS (4)
  - FEMUR FRACTURE [None]
  - ASTHMA [None]
  - ADVERSE EVENT [None]
  - TOOTH DISORDER [None]
